FAERS Safety Report 8192051-9 (Version None)
Quarter: 2012Q1

REPORT INFORMATION
  Report Type: 
  Country: None (occurrence: None)
  Receive Date: 20120307
  Receipt Date: 20120306
  Transmission Date: 20120608
  Serious: Yes (Death)
  Sender: FDA-Public Use
  Company Number: PHHY2012NL019243

PATIENT
  Sex: Female

DRUGS (3)
  1. ZOLEDRONOC ACID [Suspect]
     Dosage: 5 MG,YEARLY
     Route: 042
     Dates: start: 20081002
  2. ZOLEDRONOC ACID [Suspect]
     Dosage: 5 MG,YEARLY
     Route: 042
     Dates: start: 20120123
  3. ZOLEDRONOC ACID [Suspect]
     Dosage: 5 MG,YEARLY
     Route: 042
     Dates: start: 20110124

REACTIONS (1)
  - MALAISE [None]
